FAERS Safety Report 23528329 (Version 1)
Quarter: 2024Q1

REPORT INFORMATION
  Report Type: Spontaneous
  Country: US (occurrence: None)
  Receive Date: 20240213
  Receipt Date: 20240213
  Transmission Date: 20240410
  Serious: Yes (Life-Threatening, Hospitalization)
  Sender: FDA-Public Use
  Company Number: None

PATIENT
  Age: 16 Year
  Sex: Female
  Weight: 77.1 kg

DRUGS (2)
  1. ROPIVACAINE [Suspect]
     Active Substance: ROPIVACAINE
     Indication: Anaesthesia
     Dosage: FREQUENCY : EVERY 8 HOURS;?OTHER ROUTE : INTRASCALENE;?
     Route: 050
     Dates: start: 20240207, end: 20240207
  2. HYDROMORPHONE [Concomitant]
     Active Substance: HYDROMORPHONE

REACTIONS (8)
  - Dyspnoea [None]
  - Chest pain [None]
  - Nausea [None]
  - Confusional state [None]
  - Therapy change [None]
  - Unresponsive to stimuli [None]
  - Dyskinesia [None]
  - Anaesthetic complication [None]

NARRATIVE: CASE EVENT DATE: 20240207
